FAERS Safety Report 7499837-4 (Version None)
Quarter: 2011Q2

REPORT INFORMATION
  Report Type: 
  Country: None (occurrence: None)
  Receive Date: 20110524
  Receipt Date: 20110516
  Transmission Date: 20111010
  Serious: Yes (Other)
  Sender: FDA-Public Use
  Company Number: US-ROCHE-778117

PATIENT
  Sex: Female
  Weight: 57 kg

DRUGS (3)
  1. TORISEL [Suspect]
     Route: 042
     Dates: start: 20090910, end: 20100129
  2. METHOTREXATE [Concomitant]
     Indication: RHEUMATOID ARTHRITIS
     Dates: start: 20060101
  3. BEVACIZUMAB [Suspect]
     Route: 042
     Dates: start: 20090910, end: 20100129

REACTIONS (1)
  - B-CELL LYMPHOMA [None]
